FAERS Safety Report 22787299 (Version 3)
Quarter: 2023Q4

REPORT INFORMATION
  Report Type: Report from Study
  Country: DK (occurrence: DK)
  Receive Date: 20230804
  Receipt Date: 20231005
  Transmission Date: 20240110
  Serious: Yes (Hospitalization, Other)
  Sender: FDA-Public Use
  Company Number: DK-KARYOPHARM-2023KPT001690

PATIENT
  Age: 82 Year
  Sex: Male

DRUGS (16)
  1. SELINEXOR [Suspect]
     Active Substance: SELINEXOR
     Indication: Plasma cell myeloma
     Dosage: 60 MG, WEEKLY
     Route: 048
     Dates: start: 20221013, end: 20230716
  2. FILGRASTIM [Concomitant]
     Active Substance: FILGRASTIM
     Indication: Neuropathy peripheral
     Dosage: 30 ML/0.5 ML
     Dates: start: 20230525
  3. ASPIRIN [Concomitant]
     Active Substance: ASPIRIN
     Indication: Prophylaxis
     Dosage: 75 MG, 1 TABLET IN THE MORNING
     Dates: start: 20230522
  4. Energy drink [Concomitant]
     Indication: Supplementation therapy
     Dosage: GASTRO INTESTINAL FLUID
     Dates: start: 20230410
  5. EMEND [Concomitant]
     Active Substance: APREPITANT
     Indication: Chemotherapy side effect prophylaxis
     Dosage: 125 MG } 80 MG
     Dates: start: 20230317
  6. HYQVIA [Concomitant]
     Active Substance: HUMAN IMMUNOGLOBULIN G\HYALURONIDASE (HUMAN RECOMBINANT)
     Indication: Immunomodulatory therapy
     Dosage: 100 MG/ML; 20 G EVERY 4TH WEEK, FRIDAY MORNING
     Dates: start: 20230317
  7. ONDANSETRON [Concomitant]
     Active Substance: ONDANSETRON
     Indication: Nausea
     Dosage: 8 MG
     Dates: start: 20230317
  8. Mucolysin Forest Berries [Concomitant]
     Indication: Nasal decongestion therapy
     Dosage: 1 EFFERVESCENT TABLET AS NEEDED MAX 3 X DAILY
     Dates: start: 20230214
  9. IMOLOPE [Concomitant]
     Indication: Diarrhoea
     Dosage: 1 TABLET AS NEEDED MAX 8 X DAILY
     Dates: start: 20230210
  10. MABLET [Concomitant]
     Indication: Magnesium deficiency
     Dosage: MORNING
     Dates: start: 20221220
  11. Pharmacy Multivitamin Adults [Concomitant]
     Indication: Vitamin supplementation
     Dosage: 1 IN THE MORNING
     Dates: start: 20221220
  12. Sulfametoxazol with trimetoprim [Concomitant]
     Indication: Infection
     Dosage: 1 IN THE MORNING
     Dates: start: 20221219
  13. ACETAMINOPHEN [Concomitant]
     Active Substance: ACETAMINOPHEN
     Indication: Pain
     Dosage: 2 TABLETS AS NEEDED
     Dates: start: 20221124
  14. UNIKALK SILVER [Concomitant]
     Indication: Bone disorder
     Dosage: 1 PCS. MORNING AND EVENING
     Dates: start: 20221013
  15. ACYCLOVIR [Concomitant]
     Active Substance: ACYCLOVIR
     Indication: Prophylaxis
     Dosage: 1 TABLET MORNING AND EVENING
     Dates: start: 20221013
  16. FILGRASTIM [Concomitant]
     Active Substance: FILGRASTIM
     Indication: Neuropathy peripheral
     Dosage: 30 ML/0.5 ML
     Dates: start: 20230525

REACTIONS (5)
  - Acute kidney injury [Recovered/Resolved]
  - Weight decreased [Unknown]
  - Vomiting [Unknown]
  - Asthenia [Unknown]
  - Diarrhoea [Unknown]

NARRATIVE: CASE EVENT DATE: 20230721
